FAERS Safety Report 4617884-4 (Version None)
Quarter: 2005Q1

REPORT INFORMATION
  Report Type: 
  Country: None (occurrence: None)
  Receive Date: 20050322
  Receipt Date: 20050309
  Transmission Date: 20050727
  Serious: Yes (Hospitalization)
  Sender: FDA-Public Use
  Company Number: HQWYE157422DEC04

PATIENT
  Age: 81 Year
  Sex: Female

DRUGS (8)
  1. CORDARONE [Suspect]
     Indication: ATRIAL FIBRILLATION
     Dosage: 1800 MG PER WEEK ORAL
     Route: 048
     Dates: start: 20000101, end: 20041124
  2. CORDARONE [Suspect]
     Indication: TACHYARRHYTHMIA
     Dosage: 1800 MG PER WEEK ORAL
     Route: 048
     Dates: start: 20000101, end: 20041124
  3. DICLOFENAC SODIUM [Suspect]
     Indication: THORACIC VERTEBRAL FRACTURE
     Dosage: ORAL
     Route: 048
     Dates: start: 20040101
  4. IBUPROFEN [Suspect]
     Indication: THORACIC VERTEBRAL FRACTURE
     Dosage: ORAL
     Route: 048
     Dates: start: 20040101
  5. MARCUMAR [Suspect]
     Indication: ATRIAL FIBRILLATION
     Dosage: 3 MG (DOSE AND FREQUENCY UNSPECIFIED) ORAL
     Route: 048
  6. VALDECOXIB [Suspect]
     Indication: THORACIC VERTEBRAL FRACTURE
     Dosage: ORAL
     Route: 048
     Dates: start: 20040101
  7. DYTIDE            (BENZTHIAZIDE/TRIAMTERENE) [Concomitant]
  8. BELOC               (METOPROLOL TARTRATE) [Concomitant]

REACTIONS (7)
  - DIVERTICULAR PERFORATION [None]
  - DRUG INTERACTION [None]
  - INTERNATIONAL NORMALISED RATIO INCREASED [None]
  - LARGE INTESTINE PERFORATION [None]
  - LUNG INFILTRATION [None]
  - PNEUMONIA [None]
  - RESPIRATORY FAILURE [None]
